FAERS Safety Report 11840925 (Version 1)
Quarter: 2015Q4

REPORT INFORMATION
  Report Type: Spontaneous
  Country: US (occurrence: US)
  Receive Date: 20151216
  Receipt Date: 20151216
  Transmission Date: 20160305
  Serious: No
  Sender: FDA-Public Use
  Company Number: US-GLAXOSMITHKLINE-US2015177679

PATIENT
  Age: 57 Year
  Sex: Female

DRUGS (1)
  1. NICODERM CQ [Suspect]
     Active Substance: NICOTINE
     Indication: SMOKING CESSATION THERAPY
     Dosage: 21 MG, UNK
     Dates: start: 20151215, end: 20151215

REACTIONS (10)
  - Headache [Not Recovered/Not Resolved]
  - Blood pressure increased [Not Recovered/Not Resolved]
  - Gait disturbance [Recovered/Resolved]
  - Application site discomfort [Unknown]
  - Respiratory rate increased [Not Recovered/Not Resolved]
  - Vomiting [Recovered/Resolved]
  - Application site erythema [Unknown]
  - Dizziness [Recovered/Resolved]
  - Heart rate increased [Unknown]
  - Application site pruritus [Not Recovered/Not Resolved]

NARRATIVE: CASE EVENT DATE: 20151215
